FAERS Safety Report 6007935-7 (Version None)
Quarter: 2008Q4

REPORT INFORMATION
  Report Type: 
  Country: None (occurrence: None)
  Receive Date: 20081217
  Receipt Date: 20080613
  Transmission Date: 20090506
  Serious: No
  Sender: FDA-Public Use
  Company Number: US-ASTRAZENECA-2008UW12051

PATIENT
  Sex: Female

DRUGS (1)
  1. CRESTOR [Suspect]
     Dosage: 10 MG
     Route: 048
     Dates: start: 20080514

REACTIONS (3)
  - DIZZINESS [None]
  - FALL [None]
  - MUSCULAR WEAKNESS [None]
